FAERS Safety Report 16812030 (Version 1)
Quarter: 2019Q3

REPORT INFORMATION
  Report Type: Report from Study
  Country: BR (occurrence: BR)
  Receive Date: 20190916
  Receipt Date: 20190916
  Transmission Date: 20191005
  Serious: Yes (Death, Hospitalization)
  Sender: FDA-Public Use
  Company Number: BR-ALEXION-A201912684

PATIENT
  Age: 22 Month
  Sex: Male
  Weight: 7.3 kg

DRUGS (3)
  1. SOLIRIS [Suspect]
     Active Substance: ECULIZUMAB
     Indication: ATYPICAL HAEMOLYTIC URAEMIC SYNDROME
     Dosage: 300 MG, SINGLE
     Route: 042
     Dates: start: 20180615, end: 20180615
  2. SOLIRIS [Suspect]
     Active Substance: ECULIZUMAB
     Dosage: 300 MG, Q2W
     Route: 042
  3. SOLIRIS [Suspect]
     Active Substance: ECULIZUMAB
     Dosage: 300 MG, EVERY 21 DAYS
     Route: 042
     Dates: start: 20180622

REACTIONS (4)
  - Pyrexia [Unknown]
  - H1N1 influenza [Fatal]
  - Rhinovirus infection [Fatal]
  - Renal transplant [Unknown]

NARRATIVE: CASE EVENT DATE: 201906
